FAERS Safety Report 6618959-0 (Version None)
Quarter: 2010Q1

REPORT INFORMATION
  Report Type: 
  Country: None (occurrence: None)
  Receive Date: 20100308
  Receipt Date: 20100226
  Transmission Date: 20100710
  Serious: Yes (Other)
  Sender: FDA-Public Use
  Company Number: JP-ABBOTT-10P-087-0630118-00

PATIENT
  Age: 8 Year
  Sex: Female

DRUGS (2)
  1. LUPRON INJECTION (PEDIATRIC) [Suspect]
     Indication: PRECOCIOUS PUBERTY
     Route: 058
     Dates: start: 20091015
  2. CLARITH [Concomitant]
     Indication: DRUG USE FOR UNKNOWN INDICATION
     Route: 048

REACTIONS (1)
  - BLISTER [None]
